FAERS Safety Report 20306044 (Version 2)
Quarter: 2022Q4

REPORT INFORMATION
  Report Type: Spontaneous
  Country: CA (occurrence: CA)
  Receive Date: 20220106
  Receipt Date: 20221018
  Transmission Date: 20230113
  Serious: Yes (Hospitalization)
  Sender: FDA-Public Use
  Company Number: None

PATIENT
  Sex: Female
  Weight: 2.65 kg

DRUGS (1)
  1. ESCITALOPRAM OXALATE [Suspect]
     Active Substance: ESCITALOPRAM OXALATE
     Indication: Exposure during pregnancy
     Dosage: 20 MG, BID
     Route: 064

REACTIONS (3)
  - Cyanosis [Unknown]
  - Vascular malformation [Unknown]
  - Pregnancy [Unknown]

NARRATIVE: CASE EVENT DATE: 20210101
